FAERS Safety Report 5868221-9 (Version None)
Quarter: 2008Q3

REPORT INFORMATION
  Report Type: 
  Country: None (occurrence: None)
  Receive Date: 20080902
  Receipt Date: 20080821
  Transmission Date: 20090109
  Serious: Yes (Death, Other)
  Sender: FDA-Public Use
  Company Number: JP-PFIZER INC-2008071077

PATIENT
  Sex: Female

DRUGS (2)
  1. SOLU-MEDROL [Suspect]
     Dosage: DAILY DOSE:1000MG
     Route: 042
  2. PREDNISOLONE [Concomitant]
     Route: 048

REACTIONS (5)
  - CYTOMEGALOVIRUS GASTROINTESTINAL INFECTION [None]
  - GASTRITIS EROSIVE [None]
  - ILEAL ULCER [None]
  - MULTI-ORGAN FAILURE [None]
  - PERITONITIS [None]
